FAERS Safety Report 7895823-0 (Version None)
Quarter: 2011Q4

REPORT INFORMATION
  Report Type: 
  Country: None (occurrence: None)
  Receive Date: 20111106
  Receipt Date: 20110831
  Transmission Date: 20120403
  Serious: No
  Sender: FDA-Public Use
  Company Number: US-AMGEN-USASP2011044767

PATIENT
  Age: 68 Year
  Sex: Male

DRUGS (3)
  1. TYLENOL (CAPLET) [Concomitant]
     Dosage: UNK
  2. ENBREL [Suspect]
     Indication: RHEUMATOID ARTHRITIS
     Dosage: 50 MG, QWK
  3. FIORICET [Concomitant]
     Dosage: UNK

REACTIONS (2)
  - NAUSEA [None]
  - HEADACHE [None]
